FAERS Safety Report 6308028-1 (Version None)
Quarter: 2009Q3

REPORT INFORMATION
  Report Type: 
  Country: None (occurrence: None)
  Receive Date: 20090813
  Receipt Date: 20090807
  Transmission Date: 20100115
  Serious: Yes (Other)
  Sender: FDA-Public Use
  Company Number: A0801099A

PATIENT
  Age: 54 Year
  Sex: Female

DRUGS (2)
  1. LAMICTAL [Suspect]
     Indication: BIPOLAR DISORDER
     Dosage: 150MG PER DAY
     Route: 048
     Dates: start: 20090301, end: 20090401
  2. EFFEXOR [Concomitant]

REACTIONS (8)
  - ALOPECIA [None]
  - ERYTHEMA [None]
  - PRURITUS [None]
  - RASH PRURITIC [None]
  - SKIN BURNING SENSATION [None]
  - SKIN REACTION [None]
  - T-CELL LYMPHOMA [None]
  - URTICARIA [None]
